FAERS Safety Report 4551839-3 (Version None)
Quarter: 2005Q1

REPORT INFORMATION
  Report Type: 
  Country: None (occurrence: None)
  Receive Date: 20050111
  Receipt Date: 20050103
  Transmission Date: 20050727
  Serious: Yes (Hospitalization)
  Sender: FDA-Public Use
  Company Number: 2005003193

PATIENT
  Age: 80 Year
  Sex: Female

DRUGS (4)
  1. DIFLUCAN [Suspect]
     Indication: PROPHYLAXIS
     Dosage: (1 IN 1 D)
     Dates: start: 20041206
  2. TICLOPIDINE (TICLOPIDINE) [Concomitant]
  3. PENICILLIN [Concomitant]
  4. CEFEPIME (CEFEPIME) [Concomitant]

REACTIONS (9)
  - ADRENAL DISORDER [None]
  - ASTHENIA [None]
  - BLOOD CORTICOTROPHIN INCREASED [None]
  - BLOOD POTASSIUM INCREASED [None]
  - BLOOD SODIUM DECREASED [None]
  - HAEMOGLOBIN DECREASED [None]
  - HYPOTENSION [None]
  - RENAL FAILURE ACUTE [None]
  - WHITE BLOOD CELL COUNT DECREASED [None]
